FAERS Safety Report 14576680 (Version 4)
Quarter: 2018Q3

REPORT INFORMATION
  Report Type: Report from Study
  Country: None (occurrence: US)
  Receive Date: 20180227
  Receipt Date: 20180802
  Transmission Date: 20181010
  Serious: Yes (Hospitalization, Other)
  Sender: FDA-Public Use
  Company Number: US-ABBVIE-18K-163-2268149-00

PATIENT
  Age: 50 Year
  Sex: Female

DRUGS (1)
  1. HUMIRA [Suspect]
     Active Substance: ADALIMUMAB
     Indication: CROHN^S DISEASE
     Route: 058

REACTIONS (13)
  - Oesophageal ulcer [Unknown]
  - Thrombosis [Unknown]
  - Osteomyelitis [Unknown]
  - Pharyngeal ulceration [Unknown]
  - Effusion [Unknown]
  - Staphylococcal infection [Unknown]
  - Rash pruritic [Unknown]
  - Intervertebral disc compression [Unknown]
  - Nail hypertrophy [Unknown]
  - Cervical vertebral fracture [Unknown]
  - Platelet count decreased [Unknown]
  - Rash papular [Unknown]
  - Clostridium difficile infection [Unknown]

NARRATIVE: CASE EVENT DATE: 201801
